FAERS Safety Report 13358133 (Version 13)
Quarter: 2020Q1

REPORT INFORMATION
  Report Type: Report from Study
  Country: BE (occurrence: BE)
  Receive Date: 20170322
  Receipt Date: 20200326
  Transmission Date: 20200409
  Serious: Yes (Hospitalization)
  Sender: FDA-Public Use
  Company Number: BE-ROCHE-1909101

PATIENT
  Age: 67 Year
  Sex: Male
  Weight: 95.1 kg

DRUGS (44)
  1. PEMETREXED. [Suspect]
     Active Substance: PEMETREXED
     Indication: NON-SMALL CELL LUNG CANCER STAGE IV
     Dosage: DATE OF THE MOST RECENT DOSE PRIOR TO THE EVENT ONSET: 06/MAR/2017 OF 1050 MG?INITIAL DOSE PER PROTO
     Route: 042
     Dates: start: 20161212
  2. TERAZOSAB [Concomitant]
     Indication: PROSTATISM
     Route: 065
     Dates: start: 2006
  3. D-CURE [Concomitant]
     Active Substance: CHOLECALCIFEROL
     Indication: METASTASES TO BONE
     Route: 065
     Dates: start: 20161205
  4. DAKTARIN [MICONAZOLE] [Concomitant]
     Active Substance: MICONAZOLE
     Indication: FUNGAL INFECTION
     Route: 048
     Dates: start: 20170109
  5. ALCOHOL. [Concomitant]
     Active Substance: ALCOHOL
     Indication: MOUTH ULCERATION
     Route: 065
     Dates: start: 20170313, end: 20170320
  6. ASAFLOW [Concomitant]
     Active Substance: ASPIRIN
     Route: 065
     Dates: start: 1991
  7. FOLAVIT [Concomitant]
     Active Substance: FOLIC ACID
     Indication: PROPHYLACTIC CHEMOTHERAPY
     Route: 065
     Dates: start: 20161205
  8. DEXAMETHASONE. [Concomitant]
     Active Substance: DEXAMETHASONE
     Indication: PROPHYLACTIC CHEMOTHERAPY
     Route: 065
     Dates: start: 20170212, end: 20170214
  9. OFLOXACINE [Concomitant]
     Active Substance: OFLOXACIN
     Route: 065
     Dates: start: 20170414, end: 20170419
  10. NYSTATINE [Concomitant]
     Indication: MOUTH ULCERATION
     Route: 065
     Dates: start: 20170313, end: 20170320
  11. POTASSIUM CHLORIDE. [Concomitant]
     Active Substance: POTASSIUM CHLORIDE
     Indication: HYPOKALAEMIA
     Dosage: 80 MEQ/24H
     Route: 065
     Dates: start: 20170316, end: 20170321
  12. CARBOPLATIN. [Suspect]
     Active Substance: CARBOPLATIN
     Indication: NON-SMALL CELL LUNG CANCER STAGE IV
     Dosage: DATE OF THE MOST RECENT DOSE PRIOR TO THE EVENT ONSET: 23/JAN/2017: 330 MG
     Route: 042
     Dates: start: 20170123
  13. LIPANTHYL [Concomitant]
     Active Substance: FENOFIBRATE
     Route: 065
     Dates: start: 1985
  14. EMEND [Concomitant]
     Active Substance: APREPITANT
     Indication: NAUSEA
     Route: 065
     Dates: start: 20170214, end: 20170215
  15. GLYCEROL [Concomitant]
     Active Substance: GLYCERIN
     Indication: MOUTH ULCERATION
     Route: 065
     Dates: start: 20170313, end: 20170320
  16. BURINEX [Concomitant]
     Active Substance: BUMETANIDE
     Indication: OEDEMA
     Route: 065
     Dates: start: 20170227, end: 20170322
  17. BURINEX [Concomitant]
     Active Substance: BUMETANIDE
     Route: 065
     Dates: start: 20170404
  18. NOBITEN [NEBIVOLOL] [Concomitant]
     Indication: HYPERTENSION
     Route: 065
     Dates: start: 2000, end: 20170616
  19. VITAMINE B12 ROCHE [Concomitant]
     Indication: PROPHYLACTIC CHEMOTHERAPY
     Route: 065
     Dates: start: 20161205
  20. NOVALGIN (METAMIZOLE SODIUM) [Concomitant]
     Active Substance: METAMIZOLE SODIUM
     Indication: NECK PAIN
     Route: 065
     Dates: start: 201610
  21. ITRACONAZOLE. [Concomitant]
     Active Substance: ITRACONAZOLE
     Route: 065
     Dates: start: 20170313, end: 20170316
  22. TINZAPARIN [Concomitant]
     Active Substance: TINZAPARIN
     Indication: DERMATITIS
     Route: 065
     Dates: start: 20170306
  23. ATEZOLIZUMAB. [Suspect]
     Active Substance: ATEZOLIZUMAB
     Indication: NON-SMALL CELL LUNG CANCER STAGE IV
     Dosage: DATE OF THE MOST RECENT DOSE PRIOR TO THE EVENT ONSET: 06/MAR/2017?DATE OF THE MOST RECENT DOSE PRIO
     Route: 042
     Dates: start: 20161212
  24. LORAZEPAN [Concomitant]
     Active Substance: LORAZEPAM
     Indication: INSOMNIA
     Route: 065
     Dates: start: 1985
  25. LITICAN [ALIZAPRIDE HYDROCHLORIDE] [Concomitant]
     Indication: NAUSEA
     Route: 065
     Dates: start: 20170214, end: 20170218
  26. OFLOXACINE [Concomitant]
     Active Substance: OFLOXACIN
     Indication: NEUTROPENIA
     Route: 065
     Dates: start: 20170227, end: 20170304
  27. OFLOXACINE [Concomitant]
     Active Substance: OFLOXACIN
     Route: 065
     Dates: start: 20170313, end: 20170316
  28. ULTRA K [Concomitant]
     Indication: HYPOKALAEMIA
     Route: 065
     Dates: start: 20170228, end: 20170322
  29. CISPLATIN. [Suspect]
     Active Substance: CISPLATIN
     Indication: NON-SMALL CELL LUNG CANCER STAGE IV
     Dosage: DATE OF THE MOST RECENT DOSE PRIOR TO THE EVENT ONSET: 13/FEB/2017 OF 120 MG?INITIAL DOSE PER PROTOC
     Route: 042
     Dates: start: 20161212
  30. METFORMAX [Concomitant]
     Active Substance: METFORMIN HYDROCHLORIDE
     Indication: HYPERGLYCAEMIA
     Route: 065
     Dates: start: 1985, end: 20170327
  31. ITRACONAZOLE. [Concomitant]
     Active Substance: ITRACONAZOLE
     Indication: NEUTROPENIA
     Route: 065
     Dates: start: 20170227, end: 20170304
  32. ITRACONAZOLE. [Concomitant]
     Active Substance: ITRACONAZOLE
     Route: 065
     Dates: start: 20170415, end: 20170420
  33. HYPROMELLOSE [Concomitant]
     Active Substance: HYPROMELLOSES
     Indication: MOUTH ULCERATION
     Dosage: 4000
     Route: 065
     Dates: start: 20170313, end: 20170320
  34. KALIUM [POTASSIUM CHLORIDE] [Concomitant]
     Indication: HYPOKALAEMIA
  35. ARANESP [Concomitant]
     Active Substance: DARBEPOETIN ALFA
     Indication: ANAEMIA
     Route: 065
     Dates: start: 20161226
  36. DEXAMETHASONE. [Concomitant]
     Active Substance: DEXAMETHASONE
     Indication: CHEMOTHERAPY
     Route: 065
     Dates: start: 20170305
  37. ULTRA K [Concomitant]
     Indication: HYPOMAGNESAEMIA
     Route: 065
     Dates: start: 20170228
  38. ZOMETA [Concomitant]
     Active Substance: ZOLEDRONIC ACID
     Indication: METASTASES TO BONE
     Route: 065
     Dates: start: 20161219
  39. DIPIPERON [Concomitant]
     Active Substance: PIPAMPERONE
     Indication: INSOMNIA
     Route: 065
     Dates: start: 20161214
  40. LITICAN [ALIZAPRIDE HYDROCHLORIDE] [Concomitant]
     Route: 065
     Dates: start: 20170316, end: 20170321
  41. LIDOCAINE HCL [Concomitant]
     Active Substance: LIDOCAINE HYDROCHLORIDE
     Indication: MOUTH ULCERATION
     Route: 065
     Dates: start: 20170313, end: 20170320
  42. POTASSIUM CHLORIDE. [Concomitant]
     Active Substance: POTASSIUM CHLORIDE
     Route: 065
     Dates: start: 20170418
  43. RBC [Concomitant]
     Active Substance: HUMAN RED BLOOD CELL
     Indication: ANAEMIA
     Dosage: 1 UNIT
     Route: 065
     Dates: start: 20170214, end: 20170215
  44. ALLOPURINOL. [Concomitant]
     Active Substance: ALLOPURINOL
     Indication: HYPERURICAEMIA
     Route: 065
     Dates: start: 1986

REACTIONS (2)
  - Vasculitis [Recovered/Resolved with Sequelae]
  - Dermatitis [Recovered/Resolved with Sequelae]

NARRATIVE: CASE EVENT DATE: 20170316
